FAERS Safety Report 5798812-5 (Version None)
Quarter: 2008Q3

REPORT INFORMATION
  Report Type: 
  Country: None (occurrence: None)
  Receive Date: 20080702
  Receipt Date: 20080625
  Transmission Date: 20090109
  Serious: Yes (Other)
  Sender: FDA-Public Use
  Company Number: US-ABBOTT-08P-163-0459543-00

PATIENT
  Sex: Male

DRUGS (3)
  1. NIACIN [Suspect]
     Indication: DRUG USE FOR UNKNOWN INDICATION
     Route: 048
     Dates: start: 20060101
  2. NIACIN [Suspect]
     Indication: DRUG USE FOR UNKNOWN INDICATION
  3. NIACIN [Suspect]

REACTIONS (3)
  - ASTHENIA [None]
  - CEREBROVASCULAR ACCIDENT [None]
  - SPEECH DISORDER [None]
